FAERS Safety Report 13822687 (Version 18)
Quarter: 2020Q2

REPORT INFORMATION
  Report Type: Report from Study
  Country: US (occurrence: US)
  Receive Date: 20170801
  Receipt Date: 20200511
  Transmission Date: 20200713
  Serious: Yes (Hospitalization)
  Sender: FDA-Public Use
  Company Number: US-ACTELION-A-US2017-150764

PATIENT
  Age: 25 Year
  Sex: Female
  Weight: 63.49 kg

DRUGS (9)
  1. OPSUMIT [Suspect]
     Active Substance: MACITENTAN
     Indication: PULMONARY ARTERIAL HYPERTENSION
     Dosage: 10 MG, QD
     Route: 048
  2. VELETRI [Suspect]
     Active Substance: EPOPROSTENOL
     Indication: PULMONARY ARTERIAL HYPERTENSION
     Dosage: 20 NG/KG, PER MIN
     Route: 042
  3. VELETRI [Suspect]
     Active Substance: EPOPROSTENOL
     Dosage: 12 NG/KG, PER MIN
     Route: 042
  4. VELETRI [Suspect]
     Active Substance: EPOPROSTENOL
     Dosage: 18 NG/KG, PER MIN
     Route: 042
     Dates: start: 20170201
  5. ADCIRCA [Concomitant]
     Active Substance: TADALAFIL
     Dosage: 40 MG, QD
     Route: 048
  6. TADALAFIL. [Concomitant]
     Active Substance: TADALAFIL
  7. ASPIRIN. [Concomitant]
     Active Substance: ASPIRIN
  8. VELETRI [Suspect]
     Active Substance: EPOPROSTENOL
     Dosage: 19 NG/KG, PER MIN
     Route: 042
  9. OPSUMIT [Suspect]
     Active Substance: MACITENTAN
     Dosage: 10 MG, QD
     Route: 048

REACTIONS (28)
  - Device dislocation [Unknown]
  - Catheter site infection [Unknown]
  - Nausea [Unknown]
  - Vomiting [Unknown]
  - Migraine [Not Recovered/Not Resolved]
  - Catheter site swelling [Unknown]
  - Pruritus [Unknown]
  - Skin lesion [Unknown]
  - Pain in jaw [Not Recovered/Not Resolved]
  - Sensitive skin [Unknown]
  - Catheter management [Unknown]
  - Skin reaction [Unknown]
  - Neck pain [Unknown]
  - Diarrhoea [Not Recovered/Not Resolved]
  - Dyspnoea [Not Recovered/Not Resolved]
  - Catheter site warmth [Recovered/Resolved]
  - Nasal congestion [Unknown]
  - Catheter site erythema [Recovered/Resolved]
  - Device breakage [Unknown]
  - Dyspnoea exertional [Not Recovered/Not Resolved]
  - Flushing [Unknown]
  - Catheter site erosion [Unknown]
  - Device leakage [Unknown]
  - Catheter site pain [Unknown]
  - Headache [Not Recovered/Not Resolved]
  - Abdominal discomfort [Unknown]
  - Rash [Not Recovered/Not Resolved]
  - Palpitations [Not Recovered/Not Resolved]

NARRATIVE: CASE EVENT DATE: 201712
